FAERS Safety Report 8124334-2 (Version None)
Quarter: 2012Q1

REPORT INFORMATION
  Report Type: 
  Country: None (occurrence: None)
  Receive Date: 20120209
  Receipt Date: 20120201
  Transmission Date: 20120608
  Serious: Yes (Hospitalization)
  Sender: FDA-Public Use
  Company Number: CA-US-EMD SERONO, INC.-7003543

PATIENT
  Sex: Female

DRUGS (43)
  1. PREVEGYNE [Concomitant]
     Indication: PRODUCT USED FOR UNKNOWN INDICATION
  2. CYCLOCORT [Concomitant]
     Indication: PRODUCT USED FOR UNKNOWN INDICATION
  3. ELIDEL [Concomitant]
     Indication: PRODUCT USED FOR UNKNOWN INDICATION
  4. NIZORAL NON PR [Concomitant]
     Indication: PRODUCT USED FOR UNKNOWN INDICATION
  5. VITAMIN D + CALCIUM [Concomitant]
     Indication: PRODUCT USED FOR UNKNOWN INDICATION
  6. PREVEX B [Concomitant]
     Indication: PRODUCT USED FOR UNKNOWN INDICATION
  7. TOPICORT [Concomitant]
     Indication: PRODUCT USED FOR UNKNOWN INDICATION
  8. TIAMOL [Concomitant]
     Indication: PRODUCT USED FOR UNKNOWN INDICATION
  9. LAMISIL [Concomitant]
     Indication: PRODUCT USED FOR UNKNOWN INDICATION
  10. REBIF [Suspect]
     Indication: RELAPSING-REMITTING MULTIPLE SCLEROSIS
     Route: 058
     Dates: start: 20090820
  11. PANTOPRAZOLE [Concomitant]
     Indication: PRODUCT USED FOR UNKNOWN INDICATION
  12. REBIF SERINQUE [Concomitant]
     Indication: PRODUCT USED FOR UNKNOWN INDICATION
  13. ACETAMINOPHENE [Concomitant]
     Indication: PRODUCT USED FOR UNKNOWN INDICATION
  14. TARO TERCONAZOLE [Concomitant]
     Indication: PRODUCT USED FOR UNKNOWN INDICATION
  15. METAMUCIL T.LISSE ORANGE [Concomitant]
     Indication: PRODUCT USED FOR UNKNOWN INDICATION
  16. BETADERM [Concomitant]
     Indication: PRODUCT USED FOR UNKNOWN INDICATION
  17. DIPROSALIC [Concomitant]
     Indication: PRODUCT USED FOR UNKNOWN INDICATION
  18. NIX POUR LA PEAU [Concomitant]
     Indication: PRODUCT USED FOR UNKNOWN INDICATION
  19. PMS DIPHENHYDRAMINE [Concomitant]
     Indication: PRODUCT USED FOR UNKNOWN INDICATION
  20. PMS BACLOFEN [Concomitant]
     Indication: PRODUCT USED FOR UNKNOWN INDICATION
  21. TOPOMAX (PRO TOPIRAMATE) [Concomitant]
     Indication: PRODUCT USED FOR UNKNOWN INDICATION
  22. DOCUSATE SODIUM [Concomitant]
     Indication: PRODUCT USED FOR UNKNOWN INDICATION
  23. LECTOPAM TAB [Concomitant]
     Indication: PRODUCT USED FOR UNKNOWN INDICATION
  24. TARO CLINDAMYCIN [Concomitant]
     Indication: PRODUCT USED FOR UNKNOWN INDICATION
  25. ELAVIL [Concomitant]
     Indication: PRODUCT USED FOR UNKNOWN INDICATION
  26. BETASERON [Concomitant]
     Indication: PRODUCT USED FOR UNKNOWN INDICATION
     Route: 058
     Dates: start: 20010101, end: 20090818
  27. CLINDAMYCIN [Concomitant]
     Indication: PRODUCT USED FOR UNKNOWN INDICATION
  28. MACROBID [Concomitant]
     Indication: PRODUCT USED FOR UNKNOWN INDICATION
  29. ELOCON [Concomitant]
     Indication: PRODUCT USED FOR UNKNOWN INDICATION
  30. TARO MUPIROCIN [Concomitant]
     Indication: PRODUCT USED FOR UNKNOWN INDICATION
  31. WELLBUTRIN XL [Concomitant]
     Indication: PRODUCT USED FOR UNKNOWN INDICATION
  32. METRONIDAZOLE [Concomitant]
     Indication: PRODUCT USED FOR UNKNOWN INDICATION
  33. CAL D 400 ROSE [Concomitant]
     Indication: PRODUCT USED FOR UNKNOWN INDICATION
  34. BROMAZEPAM [Concomitant]
     Indication: PRODUCT USED FOR UNKNOWN INDICATION
  35. PROTOPIC [Concomitant]
     Indication: PRODUCT USED FOR UNKNOWN INDICATION
  36. DERMA SMOOTHE IS CUIR CHEV [Concomitant]
     Indication: PRODUCT USED FOR UNKNOWN INDICATION
  37. HYDERM [Concomitant]
     Indication: PRODUCT USED FOR UNKNOWN INDICATION
  38. RATIO EMTEC [Concomitant]
     Indication: PRODUCT USED FOR UNKNOWN INDICATION
  39. GABAPENTIN [Concomitant]
     Indication: PRODUCT USED FOR UNKNOWN INDICATION
  40. REACTINE [Concomitant]
     Indication: PRODUCT USED FOR UNKNOWN INDICATION
  41. LYRICA [Concomitant]
     Indication: PRODUCT USED FOR UNKNOWN INDICATION
  42. PMS SENNOSIDES [Concomitant]
     Indication: PRODUCT USED FOR UNKNOWN INDICATION
  43. SANDOZ PROCTOMYXIN HC [Concomitant]
     Indication: PRODUCT USED FOR UNKNOWN INDICATION

REACTIONS (7)
  - MULTIPLE SCLEROSIS RELAPSE [None]
  - PNEUMONIA [None]
  - PYELONEPHRITIS [None]
  - MUSCULAR WEAKNESS [None]
  - INJECTION SITE PAIN [None]
  - MOTOR DYSFUNCTION [None]
  - INJECTION SITE HAEMATOMA [None]
